FAERS Safety Report 8084131-3 (Version None)
Quarter: 2012Q1

REPORT INFORMATION
  Report Type: 
  Country: None (occurrence: None)
  Receive Date: 20120128
  Receipt Date: 20110208
  Transmission Date: 20120608
  Serious: No
  Sender: FDA-Public Use
  Company Number: US-ABBOTT-11P-163-0703570-00

PATIENT
  Age: 62 Year
  Sex: Female

DRUGS (4)
  1. SYMBICORT [Concomitant]
     Indication: ASTHMA
  2. UNKNOWN MEDICATION [Concomitant]
     Indication: STOMATITIS
     Dosage: SWISH AND SWALLOW
  3. HUMIRA [Suspect]
     Indication: RHEUMATOID ARTHRITIS
     Dates: start: 20050101
  4. HYDROCODONE BITARTRATE [Concomitant]
     Indication: PAIN
     Dosage: 5/500 AS NEEDED

REACTIONS (3)
  - MOUTH ULCERATION [None]
  - ASTHMA [None]
  - CHILLS [None]
